FAERS Safety Report 17957801 (Version 1)
Quarter: 2020Q2

REPORT INFORMATION
  Report Type: Report from Study
  Country: HU (occurrence: HU)
  Receive Date: 20200629
  Receipt Date: 20200629
  Transmission Date: 20200714
  Serious: Yes (Other)
  Sender: FDA-Public Use
  Company Number: HU-MYLANLABS-2020M1059087

PATIENT
  Age: 59 Year
  Sex: Male

DRUGS (3)
  1. CINACALCET HYDROCHLORIDE. [Suspect]
     Active Substance: CINACALCET HYDROCHLORIDE
     Indication: CUTANEOUS CALCIFICATION
     Dosage: 60 MILLIGRAM, QD
     Route: 048
  2. SEVELAMER [Suspect]
     Active Substance: SEVELAMER
     Indication: CUTANEOUS CALCIFICATION
     Dosage: 4800 MILLIGRAM, QD
     Route: 048
  3. AMLODIPINE [Suspect]
     Active Substance: AMLODIPINE BESYLATE
     Indication: CUTANEOUS CALCIFICATION
     Dosage: 10 MILLIGRAM, QD
     Route: 048

REACTIONS (1)
  - Drug ineffective [Unknown]
